FAERS Safety Report 4736527-2 (Version None)
Quarter: 2005Q3

REPORT INFORMATION
  Report Type: 
  Country: None (occurrence: None)
  Receive Date: 20050804
  Receipt Date: 20050728
  Transmission Date: 20060218
  Serious: Yes (Hospitalization, Other)
  Sender: FDA-Public Use
  Company Number: HQWYE967609MAR05

PATIENT
  Age: 60 Year
  Sex: Male
  Weight: 104.8 kg

DRUGS (1)
  1. MYLOTARG [Suspect]
     Indication: ACUTE MYELOID LEUKAEMIA
     Dosage: 18 MG 1X PER 1 DAY, INTRAVENOUS
     Route: 042
     Dates: start: 20040330, end: 20040330

REACTIONS (6)
  - CHILLS [None]
  - CHRONIC SINUSITIS [None]
  - FEBRILE NEUTROPENIA [None]
  - PYREXIA [None]
  - TACHYPNOEA [None]
  - URINARY RETENTION [None]
